FAERS Safety Report 21785440 (Version 1)
Quarter: 2022Q4

REPORT INFORMATION
  Report Type: Spontaneous
  Country: FR (occurrence: FR)
  Receive Date: 20221227
  Receipt Date: 20221227
  Transmission Date: 20230112
  Serious: Yes (Hospitalization, Other)
  Sender: FDA-Public Use
  Company Number: None

PATIENT
  Age: 56 Year
  Sex: Male
  Weight: 73 kg

DRUGS (4)
  1. VENLAFAXINE [Suspect]
     Active Substance: VENLAFAXINE HYDROCHLORIDE
     Indication: Depression
     Route: 048
     Dates: start: 202202, end: 20220620
  2. DISULFIRAM [Suspect]
     Active Substance: DISULFIRAM
     Indication: Ex-tobacco user
     Dosage: 500MG
     Route: 048
     Dates: start: 20220411, end: 20220620
  3. OXAZEPAM [Suspect]
     Active Substance: OXAZEPAM
     Indication: Anxiety
     Route: 048
     Dates: start: 202202, end: 20220620
  4. OXAZEPAM [Suspect]
     Active Substance: OXAZEPAM
     Indication: Ex-tobacco user

REACTIONS (2)
  - Hepatitis acute [Recovered/Resolved]
  - Condition aggravated [Recovered/Resolved]

NARRATIVE: CASE EVENT DATE: 20220617
